FAERS Safety Report 8114215-2 (Version None)
Quarter: 2012Q1

REPORT INFORMATION
  Report Type: 
  Country: None (occurrence: None)
  Receive Date: 20120205
  Receipt Date: 20120127
  Transmission Date: 20120608
  Serious: Yes (Hospitalization)
  Sender: FDA-Public Use
  Company Number: FR-BRISTOL-MYERS SQUIBB COMPANY-16373573

PATIENT
  Sex: Male

DRUGS (1)
  1. ONGLYZA [Suspect]
     Route: 048

REACTIONS (1)
  - INTESTINAL INFARCTION [None]
